FAERS Safety Report 22835790 (Version 3)
Quarter: 2025Q4

REPORT INFORMATION
  Report Type: Report from Study
  Country: EU (occurrence: EU)
  Receive Date: 20230818
  Receipt Date: 20251115
  Transmission Date: 20260118
  Serious: Yes (Hospitalization, Other)
  Sender: AUROBINDO
  Company Number: EU-PFIZER INC-202200010870

PATIENT
  Age: 23 Year
  Sex: Male

DRUGS (5)
  1. PREGABALIN [Suspect]
     Active Substance: PREGABALIN
     Indication: Product used for unknown indication
     Dosage: 1400 MILLIGRAM, ONCE A DAY
     Route: 048
  2. PREGABALIN [Suspect]
     Active Substance: PREGABALIN
     Dosage: 2400 MILLIGRAM, DAILY
     Route: 065
  3. ACETAMINOPHEN [Suspect]
     Active Substance: ACETAMINOPHEN
     Indication: Drug withdrawal syndrome
     Dosage: UNK
     Route: 065
  4. NEFOPAM [Suspect]
     Active Substance: NEFOPAM
     Indication: Drug withdrawal syndrome
     Dosage: UNK
     Route: 065
  5. CANNABIS SATIVA SUBSP. INDICA TOP [Concomitant]
     Active Substance: CANNABIS SATIVA SUBSP. INDICA TOP
     Indication: Product used for unknown indication
     Dosage: UNK
     Route: 065

REACTIONS (15)
  - Drug dependence [Unknown]
  - Myalgia [Unknown]
  - Drug withdrawal headache [Unknown]
  - Drug withdrawal syndrome [Unknown]
  - Withdrawal syndrome [Unknown]
  - Headache [Unknown]
  - Overdose [Unknown]
  - Intentional overdose [Unknown]
  - Hyperhidrosis [Unknown]
  - Nightmare [Unknown]
  - Nasal congestion [Unknown]
  - Feeling hot [Unknown]
  - Drug use disorder [Unknown]
  - Chills [Unknown]
  - Off label use [Unknown]

NARRATIVE: CASE EVENT DATE: 20200101
